FAERS Safety Report 10623360 (Version 2)
Quarter: 2015Q1

REPORT INFORMATION
  Report Type: Spontaneous
  Country: US (occurrence: US)
  Receive Date: 20141203
  Receipt Date: 20150120
  Transmission Date: 20150720
  Serious: Yes (Other)
  Sender: FDA-Public Use
  Company Number: US-BAYER-2014-173364

PATIENT
  Age: 55 Year
  Sex: Male
  Weight: 79.82 kg

DRUGS (3)
  1. ALKA-SELTZER HEARTBURN [Suspect]
     Active Substance: ANHYDROUS CITRIC ACID\SODIUM BICARBONATE
     Indication: DYSPEPSIA
     Dosage: 2 TABLESPOON, PRN
     Route: 048
     Dates: start: 1999
  2. ALKA-SELTZER GOLD [Suspect]
     Active Substance: ANHYDROUS CITRIC ACID\POTASSIUM BICARBONATE\SODIUM BICARBONATE
     Indication: DYSPEPSIA
     Dosage: 2 DF, PRN
     Route: 048
     Dates: start: 1999, end: 1999
  3. ALKA-SELTZER ORIGINAL [Suspect]
     Active Substance: ANHYDROUS CITRIC ACID\ASPIRIN\SODIUM BICARBONATE
     Dosage: UNK, PRN
     Dates: end: 1999

REACTIONS (4)
  - Pulmonary fibrosis [Not Recovered/Not Resolved]
  - Myocardial infarction [Recovered/Resolved]
  - Angina pectoris [Not Recovered/Not Resolved]
  - Drug ineffective [Unknown]

NARRATIVE: CASE EVENT DATE: 1999
